FAERS Safety Report 26167808 (Version 1)
Quarter: 2025Q4

REPORT INFORMATION
  Report Type: Spontaneous
  Country: US (occurrence: US)
  Receive Date: 20251217
  Receipt Date: 20251217
  Transmission Date: 20260117
  Serious: Yes (Death, Hospitalization, Other)
  Sender: ALEMBIC
  Company Number: US-ALEMBIC PHARMACUETICALS LIMITED-2025SCAL001737

PATIENT

DRUGS (2)
  1. TESTOSTERONE [Suspect]
     Active Substance: TESTOSTERONE
     Indication: Product used for unknown indication
     Dosage: UNK
     Route: 065
  2. OXANDROLONE [Suspect]
     Active Substance: OXANDROLONE
     Indication: Product used for unknown indication
     Dosage: UNK
     Route: 065

REACTIONS (14)
  - Sudden cardiac death [Fatal]
  - Ventricular tachyarrhythmia [Fatal]
  - Deep vein thrombosis [Fatal]
  - Nervous system disorder [Fatal]
  - Cardiac arrest [Fatal]
  - Coronary artery occlusion [Fatal]
  - Troponin increased [Fatal]
  - Haemoglobin increased [Fatal]
  - Blood erythropoietin decreased [Fatal]
  - Blood luteinising hormone decreased [Fatal]
  - Ventricular hypertrophy [Fatal]
  - Ejection fraction decreased [Fatal]
  - Diastolic dysfunction [Fatal]
  - Drug abuse [None]
